FAERS Safety Report 8402135-5 (Version None)
Quarter: 2012Q2

REPORT INFORMATION
  Report Type: 
  Country: None (occurrence: None)
  Receive Date: 20120601
  Receipt Date: 20110713
  Transmission Date: 20120825
  Serious: No
  Sender: FDA-Public Use
  Company Number: US-NOVEN-11US002782

PATIENT
  Sex: Female

DRUGS (2)
  1. DAYTRANA [Suspect]
     Dosage: 20 MG, QD
     Route: 062
     Dates: start: 20110701
  2. DAYTRANA [Suspect]
     Indication: DISTURBANCE IN ATTENTION
     Dosage: 10 MG X 2, DAILY
     Route: 062
     Dates: start: 20110601, end: 20110701

REACTIONS (4)
  - OFF LABEL USE [None]
  - DRUG PRESCRIBING ERROR [None]
  - WRONG TECHNIQUE IN DRUG USAGE PROCESS [None]
  - DRUG INEFFECTIVE [None]
